FAERS Safety Report 9851050 (Version 1)
Quarter: 2014Q1

REPORT INFORMATION
  Report Type: Spontaneous
  Country: US (occurrence: US)
  Receive Date: 20140128
  Receipt Date: 20140128
  Transmission Date: 20141002
  Serious: No
  Sender: FDA-Public Use
  Company Number: US-DYAX CORP.-2013DX000113

PATIENT
  Sex: 0

DRUGS (5)
  1. KALBITOR [Suspect]
     Indication: HEREDITARY ANGIOEDEMA
     Route: 058
     Dates: start: 20120219
  2. KALBITOR [Suspect]
     Route: 058
     Dates: start: 20120401, end: 20120401
  3. KALBITOR [Suspect]
     Route: 058
     Dates: start: 20120520, end: 20120520
  4. KALBITOR [Suspect]
     Route: 058
     Dates: start: 20120728, end: 20120728
  5. KALBITOR [Suspect]
     Route: 058
     Dates: start: 20120730, end: 20120730

REACTIONS (3)
  - Anxiety [Unknown]
  - Social avoidant behaviour [Unknown]
  - Hereditary angioedema [Recovered/Resolved]
